FAERS Safety Report 14701742 (Version 4)
Quarter: 2018Q4

REPORT INFORMATION
  Report Type: Spontaneous
  Country: US (occurrence: US)
  Receive Date: 20180331
  Receipt Date: 20181116
  Transmission Date: 20190204
  Serious: No
  Sender: FDA-Public Use
  Company Number: PHEH2018US012292

PATIENT
  Sex: Female

DRUGS (1)
  1. TYKERB [Suspect]
     Active Substance: LAPATINIB DITOSYLATE
     Indication: BREAST CANCER FEMALE
     Dosage: 1000 MG, QD
     Route: 048
     Dates: start: 20180111

REACTIONS (7)
  - Lip haemorrhage [Unknown]
  - Onychoclasis [Unknown]
  - Bone pain [Unknown]
  - Blood sodium increased [Unknown]
  - Oral pain [Unknown]
  - Nail disorder [Unknown]
  - Anxiety [Unknown]
